FAERS Safety Report 10953445 (Version 1)
Quarter: 2015Q1

REPORT INFORMATION
  Report Type: Spontaneous
  Country: US (occurrence: None)
  Receive Date: 20150226
  Receipt Date: 20150226
  Transmission Date: 20150721
  Serious: Yes (Hospitalization)
  Sender: FDA-Public Use
  Company Number: TAP2004Q01444

PATIENT
  Age: 62 Year
  Sex: Female

DRUGS (1)
  1. PREVPAC [Suspect]
     Active Substance: AMOXICILLIN\CLARITHROMYCIN\LANSOPRAZOLE
     Indication: HELICOBACTER INFECTION
     Dosage: 0.5 CARD, USE AS DIRECTED
     Route: 048
     Dates: start: 200410, end: 200410

REACTIONS (2)
  - Nausea [None]
  - Myocardial infarction [None]

NARRATIVE: CASE EVENT DATE: 200410
